FAERS Safety Report 5346240-9 (Version None)
Quarter: 2007Q2

REPORT INFORMATION
  Report Type: 
  Country: None (occurrence: None)
  Receive Date: 20070426
  Receipt Date: 20060328
  Transmission Date: 20071010
  Serious: Yes (Hospitalization, Other)
  Sender: FDA-Public Use
  Company Number: US-JNJFOC-20060302555

PATIENT
  Age: 21 Year
  Sex: Male

DRUGS (4)
  1. ULTRAM [Suspect]
     Indication: PAIN
  2. CLONAZEPAM [Suspect]
     Indication: ANXIETY
  3. CLONAZEPAM [Suspect]
     Indication: SLEEP DISORDER
  4. RITALIN [Suspect]
     Indication: ATTENTION DEFICIT/HYPERACTIVITY DISORDER

REACTIONS (1)
  - GRAND MAL CONVULSION [None]
